FAERS Safety Report 11196855 (Version 1)
Quarter: 2015Q2

REPORT INFORMATION
  Report Type: Spontaneous
  Country: FR (occurrence: FR)
  Receive Date: 20150617
  Receipt Date: 20150617
  Transmission Date: 20150821
  Serious: Yes (Hospitalization)
  Sender: FDA-Public Use
  Company Number: PHHY2015FR036701

PATIENT
  Age: 68 Year
  Sex: Female

DRUGS (2)
  1. SYMMETREL [Suspect]
     Active Substance: AMANTADINE HYDROCHLORIDE
     Indication: PARKINSON^S DISEASE
     Dosage: UNK
     Route: 065
  2. AMANTADINE [Suspect]
     Active Substance: AMANTADINE
     Indication: PARKINSON^S DISEASE
     Dosage: 2 DF, QD
     Route: 065

REACTIONS (2)
  - Reaction to drug excipients [Unknown]
  - Parkinson^s disease [Unknown]
